FAERS Safety Report 4527135-7 (Version None)
Quarter: 2004Q4

REPORT INFORMATION
  Report Type: 
  Country: None (occurrence: None)
  Receive Date: 20041202
  Receipt Date: 20040816
  Transmission Date: 20050328
  Serious: Yes (Death, Life-Threatening, Hospitalization)
  Sender: FDA-Public Use
  Company Number: 20040800368

PATIENT
  Age: 50 Year
  Sex: Male
  Weight: 158.759 kg

DRUGS (3)
  1. ATIVAN [Suspect]
     Indication: SEDATION
     Dosage: 4 MG DAILY IV
     Route: 042
     Dates: start: 20021025, end: 20021025
  2. MEPERIDINE (BAXTER) [Suspect]
     Indication: PAIN
     Dosage: 15 MG DAILY IV
     Route: 042
     Dates: start: 20021025, end: 20021025
  3. PHENERGAN [Suspect]
     Indication: PAIN
     Dosage: 12.5 MG DAILY IV
     Route: 042
     Dates: start: 20021025, end: 20021025

REACTIONS (2)
  - CARDIAC ARREST [None]
  - RESPIRATORY ARREST [None]
